FAERS Safety Report 7166308-4 (Version None)
Quarter: 2010Q4

REPORT INFORMATION
  Report Type: 
  Country: None (occurrence: None)
  Receive Date: 20101203
  Receipt Date: 20101129
  Transmission Date: 20110411
  Serious: Yes (Other)
  Sender: FDA-Public Use
  Company Number: COL_03352_2010

PATIENT
  Sex: Female

DRUGS (1)
  1. SPEED STICK FRESH ANTIPERSPIRANT DEODORANT [Suspect]
     Dosage: (405 SWIPES CUTANEOUS)
     Route: 003
     Dates: start: 19900101

REACTIONS (3)
  - BREAST CANCER STAGE I [None]
  - BREAST CYST [None]
  - METASTASES TO LYMPH NODES [None]
